FAERS Safety Report 14605873 (Version 3)
Quarter: 2018Q2

REPORT INFORMATION
  Report Type: Report from Study
  Country: DE (occurrence: DE)
  Receive Date: 20180306
  Receipt Date: 20180420
  Transmission Date: 20180711
  Serious: Yes (Other)
  Sender: FDA-Public Use
  Company Number: DE-UCBSA-2018008971

PATIENT
  Age: 36 Year
  Sex: Male

DRUGS (2)
  1. KEPPRA [Concomitant]
     Active Substance: LEVETIRACETAM
     Indication: PRODUCT USED FOR UNKNOWN INDICATION
  2. LACOSAMIDE. [Suspect]
     Active Substance: LACOSAMIDE
     Indication: EPILEPSY
     Dosage: 200 MG, 2X/DAY (BID) (200 MORNING, 200 EVENING)
     Route: 048
     Dates: start: 2008, end: 201002

REACTIONS (2)
  - Paraesthesia [Recovered/Resolved]
  - Epilepsy [Recovered/Resolved with Sequelae]

NARRATIVE: CASE EVENT DATE: 2008
